FAERS Safety Report 5776072-9 (Version None)
Quarter: 2008Q2

REPORT INFORMATION
  Report Type: 
  Country: None (occurrence: None)
  Receive Date: 20080613
  Receipt Date: 20080530
  Transmission Date: 20081010
  Serious: Yes (Other)
  Sender: FDA-Public Use
  Company Number: 2008S1000189

PATIENT
  Sex: Female

DRUGS (3)
  1. ACITRETIN [Suspect]
     Indication: HYPERKERATOSIS PALMARIS AND PLANTARIS
     Dosage: QD;PO, 20 MG; QD; PO
     Route: 048
  2. METHOTREXATE [Suspect]
     Indication: HYPERKERATOSIS PALMARIS AND PLANTARIS
     Dosage: 5 MG; QW
  3. ISOTRETINOIN [Concomitant]

REACTIONS (6)
  - BONE DENSITY DECREASED [None]
  - CHEILITIS [None]
  - DELAYED MENARCHE [None]
  - DELAYED PUBERTY [None]
  - OFF LABEL USE [None]
  - SKIN GRAFT [None]
